FAERS Safety Report 6056830-6 (Version None)
Quarter: 2009Q1

REPORT INFORMATION
  Report Type: 
  Country: None (occurrence: None)
  Receive Date: 20090129
  Receipt Date: 20090120
  Transmission Date: 20090719
  Serious: Yes (Hospitalization, Other)
  Sender: FDA-Public Use
  Company Number: SE-ABBOTT-08P-150-0483619-00

PATIENT
  Age: 74 Year
  Sex: Male

DRUGS (14)
  1. HUMIRA [Suspect]
     Indication: RHEUMATOID ARTHRITIS
     Route: 050
     Dates: start: 20070412
  2. CRESTOR [Concomitant]
     Indication: DRUG USE FOR UNKNOWN INDICATION
     Dosage: FILM-COATED TABLET
     Route: 048
  3. NITROMEX [Concomitant]
     Indication: DRUG USE FOR UNKNOWN INDICATION
     Route: 060
  4. DUROFERON [Concomitant]
     Indication: DRUG USE FOR UNKNOWN INDICATION
     Dosage: FE2+ PROLONGED-RELEASE TABLET
     Route: 048
  5. PREDNISOLONE [Concomitant]
     Indication: DRUG USE FOR UNKNOWN INDICATION
     Route: 048
  6. DIKLOFENAK [Concomitant]
     Indication: DRUG USE FOR UNKNOWN INDICATION
     Dosage: GASTRO-RESISTANT TABLET
     Route: 048
  7. TENORMIN [Concomitant]
     Indication: DRUG USE FOR UNKNOWN INDICATION
     Dosage: FILM-COATED TABLET
     Route: 048
  8. SERAXAT FILM-COATED TABLET [Concomitant]
     Indication: DRUG USE FOR UNKNOWN INDICATION
     Route: 048
  9. TROMBYL [Concomitant]
     Indication: DRUG USE FOR UNKNOWN INDICATION
     Route: 048
  10. TRIATEC [Concomitant]
     Indication: DRUG USE FOR UNKNOWN INDICATION
     Route: 048
  11. CALCICHEW-D3 [Concomitant]
     Indication: DRUG USE FOR UNKNOWN INDICATION
     Dosage: 500 MG/400 IE
     Route: 048
  12. OMEPRAZOLE [Concomitant]
     Indication: DRUG USE FOR UNKNOWN INDICATION
     Dosage: GASTRO-RESISTENT CAPSULE
     Route: 048
  13. TRIOBE [Concomitant]
     Indication: DRUG USE FOR UNKNOWN INDICATION
     Route: 048
  14. PLAVIX [Concomitant]
     Indication: DRUG USE FOR UNKNOWN INDICATION
     Dosage: FILM-COATED TABLET
     Route: 048

REACTIONS (3)
  - APPENDICITIS PERFORATED [None]
  - GASTROINTESTINAL DISORDER [None]
  - INFECTION SUSCEPTIBILITY INCREASED [None]
